FAERS Safety Report 20765022 (Version 2)
Quarter: 2022Q3

REPORT INFORMATION
  Report Type: Spontaneous
  Country: US (occurrence: US)
  Receive Date: 20220428
  Receipt Date: 20220720
  Transmission Date: 20221027
  Serious: No
  Sender: FDA-Public Use
  Company Number: US-SA-SAC20220421000793

PATIENT
  Age: 10 Year
  Sex: Female

DRUGS (1)
  1. DUPIXENT [Suspect]
     Active Substance: DUPILUMAB
     Dosage: 300 MG;OTHER
     Route: 058
     Dates: start: 202101

REACTIONS (2)
  - Condition aggravated [Unknown]
  - Dry eye [Unknown]

NARRATIVE: CASE EVENT DATE: 20220101
